FAERS Safety Report 4558878-7 (Version None)
Quarter: 2005Q1

REPORT INFORMATION
  Report Type: 
  Country: None (occurrence: None)
  Receive Date: 20050121
  Receipt Date: 20050118
  Transmission Date: 20050727
  Serious: Yes (Life-Threatening)
  Sender: FDA-Public Use
  Company Number: NL-MERCK-0501NLD00025

PATIENT
  Age: 68 Year
  Sex: Female

DRUGS (2)
  1. COZAAR [Suspect]
     Route: 048
     Dates: start: 20041019, end: 20041115
  2. FUROSEMIDE [Concomitant]
     Route: 048
     Dates: start: 20040705, end: 20041102

REACTIONS (1)
  - HEPATITIS TOXIC [None]
